FAERS Safety Report 7562886-1 (Version None)
Quarter: 2011Q2

REPORT INFORMATION
  Report Type: 
  Country: None (occurrence: None)
  Receive Date: 20110622
  Receipt Date: 20110613
  Transmission Date: 20111010
  Serious: Yes (Other)
  Sender: FDA-Public Use
  Company Number: GB-PFIZER INC-2010176993

PATIENT
  Age: 56 Year
  Sex: Female

DRUGS (6)
  1. FENOFIBRATE [Concomitant]
     Dosage: 160 MG, UNK
  2. ROSUVASTATIN [Concomitant]
     Dosage: 10 MG, UNK
  3. ATORVASTATIN CALCIUM [Suspect]
     Dosage: 10 MG, UNK
     Dates: start: 20051228
  4. SIMVASTATIN [Suspect]
     Dosage: 40 MG, UNK
     Dates: start: 20050505
  5. PRAVASTATIN [Concomitant]
     Dosage: UNK
  6. METFORMIN [Concomitant]
     Dosage: 2 G, UNK

REACTIONS (3)
  - MYALGIA [None]
  - APOLIPOPROTEIN A-I DECREASED [None]
  - HIGH DENSITY LIPOPROTEIN DECREASED [None]
